FAERS Safety Report 4607260-2 (Version None)
Quarter: 2005Q1

REPORT INFORMATION
  Report Type: 
  Country: None (occurrence: None)
  Receive Date: 20050314
  Receipt Date: 20050307
  Transmission Date: 20050727
  Serious: Yes (Death, Other)
  Sender: FDA-Public Use
  Company Number: FR-BRISTOL-MYERS SQUIBB COMPANY-12895587

PATIENT
  Age: 4 Year
  Sex: Male

DRUGS (7)
  1. CYCLOPHOSPHAMIDE [Suspect]
     Indication: MEDULLOBLASTOMA
  2. ETOPOSIDE [Suspect]
     Indication: MEDULLOBLASTOMA
  3. CISPLATIN [Suspect]
     Indication: MEDULLOBLASTOMA
  4. CARBOPLATIN [Suspect]
     Indication: MEDULLOBLASTOMA
  5. VINCRISTINE [Suspect]
     Indication: MEDULLOBLASTOMA
  6. BUSULFAN [Suspect]
     Indication: MEDULLOBLASTOMA
  7. THIOTEPA [Suspect]
     Indication: MEDULLOBLASTOMA

REACTIONS (6)
  - DISEASE PROGRESSION [None]
  - GASTROINTESTINAL HAEMORRHAGE [None]
  - MEDULLOBLASTOMA [None]
  - PORTAL VEIN THROMBOSIS [None]
  - STEM CELL TRANSPLANT [None]
  - VENOOCCLUSIVE LIVER DISEASE [None]
